FAERS Safety Report 7276594-8 (Version None)
Quarter: 2011Q1

REPORT INFORMATION
  Report Type: 
  Country: None (occurrence: None)
  Receive Date: 20110204
  Receipt Date: 20110126
  Transmission Date: 20110831
  Serious: Yes (Hospitalization)
  Sender: FDA-Public Use
  Company Number: US-AMGEN-USASP2011005107

PATIENT
  Age: 50 Year
  Sex: Female

DRUGS (1)
  1. ENBREL [Suspect]
     Indication: RHEUMATOID ARTHRITIS
     Dates: start: 20100709

REACTIONS (6)
  - HEADACHE [None]
  - DYSPNOEA [None]
  - ASTHMA [None]
  - BRONCHITIS [None]
  - OROPHARYNGEAL PAIN [None]
  - NASOPHARYNGITIS [None]
